FAERS Safety Report 23161827 (Version 1)
Quarter: 2023Q4

REPORT INFORMATION
  Report Type: Spontaneous
  Country: US (occurrence: US)
  Receive Date: 20231108
  Receipt Date: 20231108
  Transmission Date: 20240110
  Serious: Yes (Other)
  Sender: FDA-Public Use
  Company Number: US-ABBVIE-5488233

PATIENT
  Sex: Female

DRUGS (1)
  1. TRICOR [Suspect]
     Active Substance: FENOFIBRATE
     Indication: Product used for unknown indication
     Route: 048

REACTIONS (3)
  - Gastrointestinal tube insertion [Unknown]
  - Blood triglycerides increased [Unknown]
  - Wrong technique in product usage process [Unknown]
